FAERS Safety Report 18195025 (Version 3)
Quarter: 2021Q1

REPORT INFORMATION
  Report Type: Report from Study
  Country: None (occurrence: US)
  Receive Date: 20200826
  Receipt Date: 20210315
  Transmission Date: 20210419
  Serious: Yes (Other)
  Sender: FDA-Public Use
  Company Number: US-ABBVIE-20K-163-3527238-00

PATIENT
  Age: 73 Year
  Sex: Female

DRUGS (1)
  1. HUMIRA [Suspect]
     Active Substance: ADALIMUMAB
     Indication: RHEUMATOID ARTHRITIS
     Route: 058
     Dates: start: 2016, end: 202002

REACTIONS (18)
  - Loss of personal independence in daily activities [Recovered/Resolved]
  - Uveitis [Not Recovered/Not Resolved]
  - Arthritis [Recovered/Resolved]
  - Insomnia [Recovered/Resolved]
  - Joint noise [Unknown]
  - Arthralgia [Recovering/Resolving]
  - Pain [Recovered/Resolved]
  - Arthralgia [Recovered/Resolved]
  - Spondylitis [Unknown]
  - Eye inflammation [Not Recovered/Not Resolved]
  - Glaucoma [Not Recovered/Not Resolved]
  - Dry eye [Not Recovered/Not Resolved]
  - Drug ineffective [Unknown]
  - Eye injury [Not Recovered/Not Resolved]
  - Insomnia [Recovered/Resolved]
  - Osteoporosis [Unknown]
  - Scleritis [Not Recovered/Not Resolved]
  - Fibromyalgia [Unknown]

NARRATIVE: CASE EVENT DATE: 2016
